FAERS Safety Report 5667739-1 (Version None)
Quarter: 2008Q1

REPORT INFORMATION
  Report Type: 
  Country: None (occurrence: None)
  Receive Date: 20080315
  Receipt Date: 20080130
  Transmission Date: 20080703
  Serious: No
  Sender: FDA-Public Use
  Company Number: US-ABBOTT-08P-163-0436085-00

PATIENT
  Sex: Male
  Weight: 88.076 kg

DRUGS (7)
  1. HUMIRA [Suspect]
     Indication: CROHN'S DISEASE
     Route: 058
     Dates: start: 20080129
  2. PREDNISONE [Concomitant]
     Indication: CROHN'S DISEASE
     Route: 048
     Dates: start: 20080111
  3. ATORVASTATIN CALCIUM [Concomitant]
     Indication: BLOOD CHOLESTEROL
  4. VALSARTAN [Concomitant]
     Indication: BLOOD PRESSURE
  5. METOPROLOL SUCCINATE [Concomitant]
     Indication: CARDIAC DISORDER
  6. BETA BLOCKER [Concomitant]
     Indication: CARDIAC DISORDER
  7. LEVOTHYROXINE SODIUM [Concomitant]
     Indication: HYPOTHYROIDISM

REACTIONS (2)
  - HEADACHE [None]
  - INJECTION SITE IRRITATION [None]
